FAERS Safety Report 18744016 (Version 1)
Quarter: 2021Q1

REPORT INFORMATION
  Report Type: Spontaneous
  Country: CN (occurrence: CN)
  Receive Date: 20210114
  Receipt Date: 20210114
  Transmission Date: 20210419
  Serious: Yes (Other)
  Sender: FDA-Public Use
  Company Number: CN-BAXTER-2021BAX000550

PATIENT
  Age: 3 Year
  Sex: Male
  Weight: 14.7 kg

DRUGS (5)
  1. ENDOXAN [Suspect]
     Active Substance: CYCLOPHOSPHAMIDE
     Indication: ACUTE LYMPHOCYTIC LEUKAEMIA
     Dosage: CYCLOPHOSPHAMIDE 0.64 G + GLUCOSE AND SODIUM CHLORIDE (4:1) 250 ML?CAM REGIMEN
     Route: 041
     Dates: start: 20201203, end: 20201203
  2. 5% GLUCOSE AND 0.9% SODIUM CHLORIDE INJECTION [Suspect]
     Active Substance: DEXTROSE\SODIUM CHLORIDE
     Indication: MEDICATION DILUTION
     Dosage: GLUCOSE AND SODIUM CHLORIDE (4:1) 250 ML + CYCLOPHOSPHAMIDE 0.64 G?CAM REGIMEN
     Route: 041
     Dates: start: 20201203, end: 20201203
  3. SAIDESA (CYTARABINE) [Suspect]
     Active Substance: CYTARABINE
     Indication: ACUTE LYMPHOCYTIC LEUKAEMIA
     Dosage: CYTARABINE 0.64 G + GLUCOSE AND SODIUM CHLORIDE (4:1) 250 ML?CAM REGIMEN
     Route: 041
     Dates: start: 20201203, end: 20201205
  4. MERCAPTOPURINE. [Suspect]
     Active Substance: MERCAPTOPURINE
     Indication: ACUTE LYMPHOCYTIC LEUKAEMIA
     Dosage: TABLET?CAM REGIMEN
     Route: 048
     Dates: start: 20201203, end: 20201208
  5. 5% GLUCOSE AND 0.9% SODIUM CHLORIDE INJECTION [Suspect]
     Active Substance: DEXTROSE\SODIUM CHLORIDE
     Dosage: GLUCOSE AND SODIUM CHLORIDE (4:1) 250 ML + CYTARABINE 0.64 G?CAM REGIMEN
     Route: 041
     Dates: start: 20201203, end: 20201205

REACTIONS (1)
  - Myelosuppression [Recovering/Resolving]

NARRATIVE: CASE EVENT DATE: 20201211
